FAERS Safety Report 6082123-7 (Version None)
Quarter: 2009Q1

REPORT INFORMATION
  Report Type: 
  Country: None (occurrence: None)
  Receive Date: 20090218
  Receipt Date: 20081217
  Transmission Date: 20090719
  Serious: No
  Sender: FDA-Public Use
  Company Number: US-BRISTOL-MYERS SQUIBB COMPANY-14446249

PATIENT
  Age: 66 Year
  Sex: Female
  Weight: 109 kg

DRUGS (7)
  1. GLUCOPHAGE XR [Suspect]
     Indication: DIABETES MELLITUS
     Dosage: 2 DOSAGE FORM  = 2 TABLETS
  2. METFORMIN HCL [Suspect]
  3. PAXIL [Concomitant]
  4. METOPROLOL TARTRATE [Concomitant]
  5. LISINOPRIL [Concomitant]
  6. SIMVASTATIN [Concomitant]
  7. ACIPHEX [Concomitant]

REACTIONS (3)
  - BLOOD GLUCOSE FLUCTUATION [None]
  - IRRITABLE BOWEL SYNDROME [None]
  - MEDICATION RESIDUE [None]
